FAERS Safety Report 6110566-1 (Version None)
Quarter: 2009Q1

REPORT INFORMATION
  Report Type: 
  Country: None (occurrence: None)
  Receive Date: 20090310
  Receipt Date: 20090303
  Transmission Date: 20090719
  Serious: Yes (Hospitalization, Other)
  Sender: FDA-Public Use
  Company Number: AU-ABBOTT-09P-008-0560312-00

PATIENT
  Sex: Female

DRUGS (1)
  1. HUMIRA [Suspect]
     Indication: CROHN'S DISEASE
     Dosage: INITIAL DOSE

REACTIONS (2)
  - GASTROINTESTINAL NECROSIS [None]
  - LARGE INTESTINE PERFORATION [None]
